FAERS Safety Report 6210916-1 (Version None)
Quarter: 2009Q2

REPORT INFORMATION
  Report Type: 
  Country: None (occurrence: None)
  Receive Date: 20090601
  Receipt Date: 20090522
  Transmission Date: 20091009
  Serious: Yes (Other)
  Sender: FDA-Public Use
  Company Number: ZA-ABBOTT-09P-143-0572639-00

PATIENT
  Sex: Female
  Weight: 75 kg

DRUGS (3)
  1. MAVIK [Suspect]
     Indication: HYPERTENSION
     Route: 048
     Dates: start: 19990101
  2. NATRILIX-SR [Suspect]
     Indication: HYPERTENSION
     Route: 048
     Dates: start: 19990101
  3. ROSUVASTATIN CALCIUM [Concomitant]
     Indication: DRUG USE FOR UNKNOWN INDICATION
     Route: 048
     Dates: end: 20080901

REACTIONS (4)
  - KIDNEY INFECTION [None]
  - MALAISE [None]
  - MYOCARDIAL INFARCTION [None]
  - THROAT IRRITATION [None]
